FAERS Safety Report 5763902-X (Version None)
Quarter: 2008Q2

REPORT INFORMATION
  Report Type: 
  Country: None (occurrence: None)
  Receive Date: 20080606
  Receipt Date: 20080606
  Transmission Date: 20081010
  Serious: Yes (Other)
  Sender: FDA-Public Use
  Company Number: None

PATIENT
  Sex: Male
  Weight: 108.8633 kg

DRUGS (3)
  1. CREST PRO-HEALTH NIGHT RINSE FULL STRENGTH PROCTER + GAMBLE [Suspect]
     Indication: BREATH ODOUR
     Dosage: ADULTS + CHILDREN 6 YRS. 4 TSP. 2X A DAY DENTAL
     Route: 004
     Dates: start: 20080301, end: 20080512
  2. CREST PRO-HEALTH NIGHT RINSE FULL STRENGTH PROCTER + GAMBLE [Suspect]
     Indication: DENTAL PLAQUE
     Dosage: ADULTS + CHILDREN 6 YRS. 4 TSP. 2X A DAY DENTAL
     Route: 004
     Dates: start: 20080301, end: 20080512
  3. CREST PRO-HEALTH NIGHT RINSE FULL STRENGTH PROCTER + GAMBLE [Suspect]
     Indication: GINGIVITIS
     Dosage: ADULTS + CHILDREN 6 YRS. 4 TSP. 2X A DAY DENTAL
     Route: 004
     Dates: start: 20080301, end: 20080512

REACTIONS (1)
  - TOOTH DISCOLOURATION [None]
